FAERS Safety Report 13219438 (Version 2)
Quarter: 2017Q1

REPORT INFORMATION
  Report Type: Report from Study
  Country: DE (occurrence: DE)
  Receive Date: 20170210
  Receipt Date: 20170216
  Transmission Date: 20170428
  Serious: Yes (Hospitalization)
  Sender: FDA-Public Use
  Company Number: DE-ROCHE-1888330

PATIENT
  Age: 82 Year
  Sex: Female
  Weight: 62.5 kg

DRUGS (17)
  1. VENLAFAXIN [Concomitant]
     Active Substance: VENLAFAXINE HYDROCHLORIDE
     Indication: DEPRESSION
     Route: 048
     Dates: start: 201401
  2. COTRIM FORTE [Concomitant]
     Active Substance: SULFAMETHOXAZOLE\TRIMETHOPRIM
     Indication: INFECTION PROPHYLAXIS
     Route: 048
     Dates: start: 20160510
  3. MIRTAZAPIN [Concomitant]
     Active Substance: MIRTAZAPINE
     Indication: DEPRESSION
     Route: 048
     Dates: start: 201401
  4. XYLODUO [Concomitant]
     Indication: SINUSITIS
     Route: 050
     Dates: start: 20160907, end: 201609
  5. LAXANS (UNK INGREDIENTS) [Concomitant]
     Indication: CONSTIPATION PROPHYLAXIS
     Dosage: NATRIUM PICOSULFAT
     Route: 048
     Dates: start: 20160719
  6. MIRFULAN [Concomitant]
     Indication: RASH
     Dosage: 100 UNKNOWN
     Route: 061
     Dates: start: 20160910, end: 201609
  7. ALLOPURINOL. [Concomitant]
     Active Substance: ALLOPURINOL
     Route: 048
     Dates: start: 20160510
  8. PERFALGAN [Concomitant]
     Active Substance: ACETAMINOPHEN
     Indication: PYREXIA
     Route: 042
     Dates: start: 20170131, end: 20170131
  9. AUGMENTAN [Concomitant]
     Active Substance: AMOXICILLIN\CLAVULANATE POTASSIUM
     Indication: BRONCHITIS
     Route: 048
     Dates: start: 20170117, end: 20170121
  10. JONOSTERIL [Concomitant]
     Active Substance: CALCIUM ACETATE\MAGNESIUM ACETATE\POTASSIUM ACETATE\SODIUM ACETATE\SODIUM CHLORIDE
     Route: 042
     Dates: start: 20170130, end: 20170206
  11. HCT 1 A PHARMA [Concomitant]
     Indication: HYPERTENSION
     Route: 048
     Dates: start: 2014
  12. TIM-OPHTAL [Concomitant]
     Active Substance: TIMOLOL MALEATE
     Indication: GLAUCOMA
     Dosage: SINE
     Route: 047
     Dates: start: 2012
  13. HCT 1 A PHARMA [Concomitant]
     Route: 048
     Dates: start: 2014
  14. CLEXANE [Concomitant]
     Active Substance: ENOXAPARIN SODIUM
     Indication: THROMBOSIS PROPHYLAXIS
     Route: 058
     Dates: start: 20170203, end: 20170206
  15. OBINUTUZUMAB [Suspect]
     Active Substance: OBINUTUZUMAB
     Indication: CHRONIC LYMPHOCYTIC LEUKAEMIA
     Dosage: DATE OF MOST RECENT DOSE OF OBINUTUZUMAB PRIOR TO AE ONSET : 27/SEP/2016 WITH A START TIME OF 0935
     Route: 042
     Dates: start: 20160510
  16. CHLORAMBUCIL [Suspect]
     Active Substance: CHLORAMBUCIL
     Indication: CHRONIC LYMPHOCYTIC LEUKAEMIA
     Dosage: DATE OF MOST RECENT DOSE OF CHLORAMBUCIL PRIOR TO AE ONSET : 03/JAN/2017(30 MG) WITH A START TIME OF
     Route: 048
     Dates: start: 20160510
  17. SAB SIMPLEX [Concomitant]
     Indication: FLATULENCE
     Route: 048
     Dates: start: 20160726

REACTIONS (1)
  - Bronchiolitis [Recovered/Resolved]

NARRATIVE: CASE EVENT DATE: 20170130
